FAERS Safety Report 11409856 (Version 1)
Quarter: 2015Q3

REPORT INFORMATION
  Report Type: Spontaneous
  Country: US (occurrence: None)
  Receive Date: 20150820
  Receipt Date: 20150820
  Transmission Date: 20151125
  Serious: No
  Sender: FDA-Public Use
  Company Number: 2014-21342

PATIENT
  Age: 44 Year
  Sex: Male
  Weight: 91 kg

DRUGS (1)
  1. TESTOSTERONE CYPIONATE (UNKNOWN)(TESTOSTERONE CYPIONATE) UNK [Suspect]
     Active Substance: TESTOSTERONE CYPIONATE
     Indication: BLOOD TESTOSTERONE DECREASED
     Route: 030
     Dates: start: 2008

REACTIONS (4)
  - Nipple pain [None]
  - Haematocrit increased [None]
  - Blood testosterone decreased [None]
  - Night sweats [None]

NARRATIVE: CASE EVENT DATE: 20130913
